FAERS Safety Report 8472214-5 (Version None)
Quarter: 2012Q2

REPORT INFORMATION
  Report Type: 
  Country: None (occurrence: None)
  Receive Date: 20120627
  Receipt Date: 20120615
  Transmission Date: 20120825
  Serious: Yes (Hospitalization)
  Sender: FDA-Public Use
  Company Number: US-ELI_LILLY_AND_COMPANY-US201108002303

PATIENT
  Sex: Female

DRUGS (2)
  1. FORTEO [Suspect]
     Indication: OSTEOPOROSIS
     Dosage: UNK, UNKNOWN
     Route: 065
     Dates: start: 20111101, end: 20120515
  2. FORTEO [Suspect]
     Dosage: UNK
     Dates: end: 20120515

REACTIONS (10)
  - CERUMEN IMPACTION [None]
  - NAUSEA [None]
  - HOSPITALISATION [None]
  - CONFUSIONAL STATE [None]
  - NASOPHARYNGITIS [None]
  - ABDOMINAL DISCOMFORT [None]
  - MOBILITY DECREASED [None]
  - MEMORY IMPAIRMENT [None]
  - MOOD ALTERED [None]
  - DIZZINESS [None]
